FAERS Safety Report 4909623-4 (Version None)
Quarter: 2006Q1

REPORT INFORMATION
  Report Type: 
  Country: None (occurrence: None)
  Receive Date: 20060209
  Receipt Date: 20060123
  Transmission Date: 20060701
  Serious: Yes (Hospitalization)
  Sender: FDA-Public Use
  Company Number: US200601003686

PATIENT
  Age: 74 Year
  Sex: Female
  Weight: 56.2 kg

DRUGS (2)
  1. FORTEO [Suspect]
     Indication: OSTEOPOROSIS
     Dosage: 20 UG/DAY
     Dates: start: 20050601
  2. FORTEO [Concomitant]

REACTIONS (1)
  - CHONDROPATHY [None]
